FAERS Safety Report 5872184-X (Version None)
Quarter: 2008Q3

REPORT INFORMATION
  Report Type: 
  Country: None (occurrence: None)
  Receive Date: 20080905
  Receipt Date: 20080829
  Transmission Date: 20090109
  Serious: Yes (Other)
  Sender: FDA-Public Use
  Company Number: US-GILEAD-2007-0013553

PATIENT
  Sex: Male

DRUGS (8)
  1. LETAIRIS [Suspect]
     Indication: PULMONARY ARTERIAL HYPERTENSION
     Route: 048
     Dates: start: 20070912, end: 20070920
  2. NORVASC [Concomitant]
  3. DIGITEK [Concomitant]
  4. FELODIPINE [Concomitant]
  5. SYNTHROID [Concomitant]
  6. LEVOTHROID [Concomitant]
  7. PREDNISONE TAB [Concomitant]
  8. PROTONIX [Concomitant]

REACTIONS (2)
  - DYSPNOEA [None]
  - NASAL CONGESTION [None]
